FAERS Safety Report 5510163-2 (Version None)
Quarter: 2007Q4

REPORT INFORMATION
  Report Type: 
  Country: None (occurrence: None)
  Receive Date: 20071108
  Receipt Date: 20071105
  Transmission Date: 20080405
  Serious: Yes (Other)
  Sender: FDA-Public Use
  Company Number: RO-BRISTOL-MYERS SQUIBB COMPANY-13969431

PATIENT

DRUGS (3)
  1. STREPTOMYCIN [Suspect]
     Indication: TUBERCULOSIS
  2. AMIKACIN SULFATE [Suspect]
     Indication: TUBERCULOSIS
  3. KANAMYCIN SULFATE [Suspect]
     Indication: TUBERCULOSIS

REACTIONS (5)
  - ANURIA [None]
  - DEAFNESS [None]
  - DISCOMFORT [None]
  - DIZZINESS [None]
  - RENAL FAILURE [None]
